FAERS Safety Report 8047805-6 (Version None)
Quarter: 2012Q1

REPORT INFORMATION
  Report Type: 
  Country: None (occurrence: None)
  Receive Date: 20120116
  Receipt Date: 20120109
  Transmission Date: 20120608
  Serious: Yes (Hospitalization, Other)
  Sender: FDA-Public Use
  Company Number: PHEH2008US07606

PATIENT
  Sex: Female
  Weight: 70.9 kg

DRUGS (42)
  1. ARANESP [Concomitant]
  2. IMODIUM [Concomitant]
     Dosage: 2 MG, Q6H PRN
     Route: 048
  3. VICODIN [Concomitant]
  4. NEURONTIN [Concomitant]
  5. RENA-VITE [Concomitant]
  6. POTASSIUM CHLORIDE [Concomitant]
  7. DEXAMETHASONE [Concomitant]
  8. BACTRIM [Concomitant]
  9. FLEXERIL [Concomitant]
     Dosage: 5 MG, Q8H PRN
     Route: 048
  10. SODIUM BICARBONATE [Concomitant]
     Dosage: 650 MG, TID
  11. AREDIA [Suspect]
     Dosage: UNK UKN, QMO
     Route: 042
     Dates: start: 20020101
  12. RENAGEL [Concomitant]
  13. ZEMPLAR [Concomitant]
  14. PYRIDOXINE HCL [Concomitant]
     Dosage: 50 MG, QD
  15. NEUPOGEN [Concomitant]
     Dosage: 300 UG, UNK
  16. INTERFERON [Concomitant]
     Indication: MULTIPLE MYELOMA
  17. FUROSEMIDE [Concomitant]
  18. THALIDOMIDE [Concomitant]
  19. NYSTATIN [Concomitant]
  20. CEFEPIME [Concomitant]
     Dosage: 1 G, Q12H
     Route: 042
  21. ZOFRAN [Concomitant]
     Dosage: 8 MG, UNK
  22. ASPIRIN [Concomitant]
     Dosage: 81 MG, QD
     Route: 048
  23. PEPCID [Concomitant]
     Dosage: 20 MG, QD
     Route: 048
  24. ZOMETA [Suspect]
     Dosage: 4 MG, UNK
  25. VIOXX [Concomitant]
     Dosage: 2 QD
  26. ASPIRIN [Concomitant]
  27. PAMELOR [Concomitant]
     Indication: LIMB DISCOMFORT
  28. EPOGEN [Concomitant]
  29. ACETAMINOPHEN [Concomitant]
     Dosage: 1 DF, Q6H PRN
     Route: 048
  30. NEPHRO-VITE [Concomitant]
     Indication: RENAL FAILURE
  31. POTASSIUM CHLORIDE [Concomitant]
     Dosage: 10 MEQ, QD
  32. LASIX [Concomitant]
  33. RYTHMOL [Concomitant]
     Dosage: 50 MG, 2QD
  34. IRON [Concomitant]
  35. HYDROCODONE BITARTRATE [Concomitant]
     Indication: PAIN
  36. HEMODIALYSIS [Concomitant]
     Indication: MULTIPLE MYELOMA
  37. ZOVIRAX [Concomitant]
     Dosage: 200 MG, Q48H
     Route: 048
  38. PROTONIX [Concomitant]
     Dosage: 40 MG, QD
     Route: 048
  39. OXYCONTIN [Concomitant]
     Indication: PAIN
  40. M.V.I. [Concomitant]
  41. ALBUTEROL [Concomitant]
  42. ATIVAN [Concomitant]
     Route: 042

REACTIONS (100)
  - OSTEITIS [None]
  - ABSCESS ORAL [None]
  - LIMB DISCOMFORT [None]
  - DIARRHOEA [None]
  - INJURY [None]
  - ANXIETY [None]
  - CEREBROVASCULAR DISORDER [None]
  - DYSPNOEA [None]
  - OTITIS MEDIA [None]
  - SPONDYLOARTHROPATHY [None]
  - TOOTHACHE [None]
  - BLOOD ALBUMIN DECREASED [None]
  - INTERVERTEBRAL DISC PROTRUSION [None]
  - OSTEONECROSIS OF JAW [None]
  - BACK DISORDER [None]
  - DEHYDRATION [None]
  - OSTEOPENIA [None]
  - OSTEOMYELITIS [None]
  - GLAUCOMA [None]
  - NEPHROTIC SYNDROME [None]
  - OROPHARYNGEAL PAIN [None]
  - SPINAL HAEMANGIOMA [None]
  - IMPAIRED GASTRIC EMPTYING [None]
  - LYMPHADENOPATHY MEDIASTINAL [None]
  - INTERSTITIAL LUNG DISEASE [None]
  - PLEURAL EFFUSION [None]
  - FALL [None]
  - ARTHRALGIA [None]
  - HYPOAESTHESIA [None]
  - OEDEMA [None]
  - ARTERIOVENOUS FISTULA [None]
  - PROTEINURIA [None]
  - FISTULA [None]
  - PERIODONTITIS [None]
  - LYMPHADENOPATHY [None]
  - CELLULITIS [None]
  - SPONDYLOLYSIS [None]
  - HEPATIC STEATOSIS [None]
  - DIZZINESS [None]
  - SEPSIS [None]
  - INTERVERTEBRAL DISC SPACE NARROWING [None]
  - BLOOD BICARBONATE DECREASED [None]
  - BONE ABSCESS [None]
  - BACK PAIN [None]
  - ORAL PAIN [None]
  - BONE DISORDER [None]
  - PLASMACYTOSIS [None]
  - PANCYTOPENIA [None]
  - SIALOADENITIS [None]
  - PAIN [None]
  - OEDEMA PERIPHERAL [None]
  - BLOOD PARATHYROID HORMONE INCREASED [None]
  - BLOOD PHOSPHORUS INCREASED [None]
  - HYPOKALAEMIA [None]
  - ESCHERICHIA INFECTION [None]
  - IMPAIRED HEALING [None]
  - SALIVARY GLAND DISORDER [None]
  - HYPOCALCAEMIA [None]
  - OSTEOSCLEROSIS [None]
  - SINUS CONGESTION [None]
  - DELIRIUM [None]
  - MEAN CELL HAEMOGLOBIN CONCENTRATION DECREASED [None]
  - MUCOSAL INFLAMMATION [None]
  - NEUTROPENIA [None]
  - ANAEMIA MACROCYTIC [None]
  - CAROTID ARTERY STENOSIS [None]
  - JOINT INJURY [None]
  - TOOTH DISORDER [None]
  - OSTEOLYSIS [None]
  - RENAL FAILURE [None]
  - HYPERTENSION [None]
  - THROMBOCYTOPENIA [None]
  - LIGAMENT DISORDER [None]
  - HYPOGAMMAGLOBULINAEMIA [None]
  - HYPERPHOSPHATAEMIA [None]
  - MUSCULAR WEAKNESS [None]
  - PAIN IN JAW [None]
  - PRIMARY SEQUESTRUM [None]
  - LUMBAR SPINAL STENOSIS [None]
  - VOMITING [None]
  - INFECTION [None]
  - PHYSICAL DISABILITY [None]
  - NEUROPATHY PERIPHERAL [None]
  - RENAL FAILURE CHRONIC [None]
  - BLOOD CREATININE INCREASED [None]
  - DIVERTICULUM [None]
  - ELECTROLYTE IMBALANCE [None]
  - IMMUNOGLOBULINS DECREASED [None]
  - MEAN CELL HAEMOGLOBIN INCREASED [None]
  - LIGAMENT SPRAIN [None]
  - RADICULAR PAIN [None]
  - OROPHARYNGEAL BLISTERING [None]
  - PERIODONTAL DISEASE [None]
  - OSTEOPOROSIS [None]
  - BODY DYSMORPHIC DISORDER [None]
  - NEPHROSCLEROSIS [None]
  - COUGH [None]
  - MULTIPLE MYELOMA [None]
  - BONE MARROW OEDEMA [None]
  - MEAN CELL VOLUME INCREASED [None]
